FAERS Safety Report 16634432 (Version 3)
Quarter: 2024Q4

REPORT INFORMATION
  Report Type: Spontaneous
  Country: BE (occurrence: BE)
  Receive Date: 20190726
  Receipt Date: 20241216
  Transmission Date: 20250114
  Serious: Yes (Other)
  Sender: ROCHE
  Company Number: BE-ROCHE-2355967

PATIENT
  Age: 43 Year
  Sex: Female

DRUGS (10)
  1. MYCOPHENOLATE MOFETIL [Suspect]
     Active Substance: MYCOPHENOLATE MOFETIL
     Indication: Immunosuppression
     Route: 065
  2. GANCICLOVIR [Suspect]
     Active Substance: GANCICLOVIR
     Indication: Cytomegalovirus infection
     Route: 065
  3. CIDOFOVIR [Suspect]
     Active Substance: CIDOFOVIR
     Indication: Cytomegalovirus infection
     Route: 065
  4. CIDOFOVIR [Suspect]
     Active Substance: CIDOFOVIR
     Route: 065
  5. CIDOFOVIR [Suspect]
     Active Substance: CIDOFOVIR
     Route: 065
  6. TACROLIMUS [Suspect]
     Active Substance: TACROLIMUS
     Indication: Immunosuppression
     Route: 065
  7. BASILIXIMAB [Suspect]
     Active Substance: BASILIXIMAB
     Indication: Immunosuppression
     Route: 065
  8. FOSCARNET [Suspect]
     Active Substance: FOSCARNET
     Indication: Cytomegalovirus infection
     Route: 065
  9. VALGANCICLOVIR [Concomitant]
     Active Substance: VALGANCICLOVIR
     Indication: Antiviral prophylaxis
     Dosage: DAY 43 POST-TRANSPLANTATION
     Route: 065
  10. VALGANCICLOVIR [Concomitant]
     Active Substance: VALGANCICLOVIR
     Dosage: ON DAY 5 POST-TRANSPLANTATION
     Route: 065

REACTIONS (10)
  - Viral uveitis [Recovered/Resolved]
  - Cytomegalovirus infection [Recovered/Resolved]
  - Drug resistance [Unknown]
  - Kidney infection [Unknown]
  - Tubulointerstitial nephritis [Recovered/Resolved]
  - Kidney fibrosis [Recovered/Resolved]
  - Thrombocytopenia [Recovered/Resolved]
  - C-reactive protein increased [Unknown]
  - Glomerulonephritis [Unknown]
  - Diarrhoea [Recovered/Resolved]
